FAERS Safety Report 9951142 (Version 2)
Quarter: 2014Q1

REPORT INFORMATION
  Report Type: Spontaneous
  Country: US (occurrence: US)
  Receive Date: 20140304
  Receipt Date: 20140324
  Transmission Date: 20141002
  Serious: Yes (Hospitalization)
  Sender: FDA-Public Use
  Company Number: US-BAXTER-2014BAX010312

PATIENT
  Sex: Female

DRUGS (2)
  1. DIANEAL PD2 (ULTRABAG) [Suspect]
     Indication: PERITONEAL DIALYSIS
     Route: 033
     Dates: start: 201402
  2. DIANEAL PD2 (ULTRABAG) [Suspect]
     Indication: PERITONEAL DIALYSIS
     Route: 033
     Dates: start: 201402

REACTIONS (2)
  - Peritonitis [Recovered/Resolved]
  - Peritoneal dialysis complication [Recovered/Resolved]
